FAERS Safety Report 19264008 (Version 1)
Quarter: 2021Q2

REPORT INFORMATION
  Report Type: Spontaneous
  Country: FR (occurrence: FR)
  Receive Date: 20210517
  Receipt Date: 20210517
  Transmission Date: 20210717
  Serious: Yes (Hospitalization)
  Sender: FDA-Public Use
  Company Number: FR-TEVA-2021-FR-1911102

PATIENT
  Age: 79 Year
  Sex: Female
  Weight: 64 kg

DRUGS (16)
  1. PENTASA [Concomitant]
     Active Substance: MESALAMINE
     Dosage: 1 DF
  2. FUROSEMIDE. [Concomitant]
     Active Substance: FUROSEMIDE
     Dosage: 40 MG
  3. BISOPROLOL [Concomitant]
     Active Substance: BISOPROLOL
     Dosage: 10 MG
  4. METFORMINE [Concomitant]
     Active Substance: METFORMIN HYDROCHLORIDE
     Dosage: 1000 MG 2X / D; 2000 MG
  5. PREDNISOLONE. [Concomitant]
     Active Substance: PREDNISOLONE
     Dosage: 15 MG
  6. ZYMA [Concomitant]
     Active Substance: PROBIOTICS NOS
     Dosage: 3 GTT
  7. LEVOTHYROX [Concomitant]
     Active Substance: LEVOTHYROXINE
     Dosage: 100 MCG
  8. LAROXYL [Concomitant]
     Active Substance: AMITRIPTYLINE HYDROCHLORIDE
     Dosage: 151.5 DF
  9. DEXERYL [Concomitant]
     Dosage: 3 DF
  10. METHOTREXATE. [Suspect]
     Active Substance: METHOTREXATE
     Indication: RHEUMATIC DISORDER
     Dosage: 10 MG
     Dates: start: 201411, end: 202012
  11. ACIDE FOLIQ [Concomitant]
     Dosage: 5 MG
     Dates: end: 20210410
  12. METHOTREXATE. [Suspect]
     Active Substance: METHOTREXATE
     Dosage: 15 MG
     Dates: start: 202012, end: 20210409
  13. BRINZOLAMIDE [Concomitant]
     Active Substance: BRINZOLAMIDE
     Dosage: 1 DROP 2X / D; 2 GTT
  14. DIFFU [Concomitant]
     Dosage: 2 TABS 2X / D; 4 DF
  15. PANTOPRAZOLE [Concomitant]
     Active Substance: PANTOPRAZOLE
     Dosage: 20 MG
  16. GANFORT [Concomitant]
     Active Substance: BIMATOPROST\TIMOLOL
     Dosage: 1 GTT

REACTIONS (3)
  - Aphthous ulcer [Recovering/Resolving]
  - Pancytopenia [Recovering/Resolving]
  - General physical health deterioration [Recovering/Resolving]

NARRATIVE: CASE EVENT DATE: 2021
